FAERS Safety Report 21712873 (Version 2)
Quarter: 2022Q4

REPORT INFORMATION
  Report Type: Spontaneous
  Country: ES (occurrence: ES)
  Receive Date: 20221212
  Receipt Date: 20221214
  Transmission Date: 20230113
  Serious: Yes (Hospitalization, Congenital Anomaly, Other)
  Sender: FDA-Public Use
  Company Number: ES-TEVA-2022-ES-2827365

PATIENT

DRUGS (2)
  1. DICLOFENAC SODIUM [Suspect]
     Active Substance: DICLOFENAC SODIUM
     Indication: Product used for unknown indication
     Dosage: UNK, MATERNAL DOSE AT EXPOSURE: UNK
  2. DICLOFENAC SODIUM [Suspect]
     Active Substance: DICLOFENAC SODIUM
     Indication: Foetal exposure during pregnancy

REACTIONS (12)
  - Right ventricular failure [Recovered/Resolved]
  - Newborn persistent pulmonary hypertension [Unknown]
  - Ascites [Recovered/Resolved]
  - Cyanosis neonatal [Recovered/Resolved]
  - Neonatal hypoxia [Recovered/Resolved]
  - Ductus arteriosus premature closure [Recovered/Resolved]
  - Respiratory distress [Recovered/Resolved]
  - Heart rate increased [Recovered/Resolved]
  - Blood pressure decreased [Recovered/Resolved]
  - Respiratory rate increased [Recovered/Resolved]
  - Cardiac function test abnormal [Recovered/Resolved]
  - Foetal exposure during pregnancy [Unknown]
